FAERS Safety Report 23599068 (Version 1)
Quarter: 2024Q1

REPORT INFORMATION
  Report Type: Spontaneous
  Country: DE (occurrence: DE)
  Receive Date: 20240306
  Receipt Date: 20240306
  Transmission Date: 20240410
  Serious: Yes (Hospitalization)
  Sender: FDA-Public Use
  Company Number: DE-MYLANLABS-2023M1042919

PATIENT
  Age: 84 Year
  Sex: Female

DRUGS (13)
  1. TRANEXAMIC ACID [Suspect]
     Active Substance: TRANEXAMIC ACID
     Indication: Fibrinolysis decreased
     Dosage: 20 MILLIGRAM/KILOGRAM, EVERY HOUR FOR 1 HOUR
     Route: 040
  2. TRANEXAMIC ACID [Suspect]
     Active Substance: TRANEXAMIC ACID
     Indication: Haemorrhage prophylaxis
     Dosage: 4 MILLIGRAM/KILOGRAM, EVERY HOUR
     Route: 040
  3. NOREPINEPHRINE [Concomitant]
     Active Substance: NOREPINEPHRINE\NOREPINEPHRINE BITARTRATE
     Indication: Product used for unknown indication
     Dosage: 0.13 MICROGRAM/KILOGRAM
     Route: 065
  4. CAFEDRINE;THEODRENALINE [Concomitant]
     Indication: Product used for unknown indication
     Dosage: 0.5 MILLILITER
     Route: 065
  5. FIBRINOGEN [Concomitant]
     Active Substance: FIBRINOGEN HUMAN
     Indication: Fibrinolysis decreased
     Dosage: 3 GRAM
     Route: 065
  6. PROTHROMBIN [Concomitant]
     Active Substance: PROTHROMBIN
     Indication: Fibrinolysis decreased
     Dosage: UNK
     Route: 065
  7. ALBUMIN HUMAN [Concomitant]
     Active Substance: ALBUMIN HUMAN
     Indication: Fibrinolysis decreased
     Dosage: UNK
     Route: 065
  8. IRON [Concomitant]
     Active Substance: IRON
     Indication: Fibrinolysis decreased
     Dosage: UNK
     Route: 065
  9. SUFENTANIL [Concomitant]
     Active Substance: SUFENTANIL
     Indication: Anaesthesia
     Dosage: 0.52 MICROGRAM/KILOGRAM
     Route: 065
  10. SUFENTANIL [Concomitant]
     Active Substance: SUFENTANIL
     Dosage: (0.1?0.3 ?G/KG)
     Route: 040
  11. PROPOFOL [Concomitant]
     Active Substance: PROPOFOL
     Indication: Anaesthesia
     Dosage: 1.67 MILLIGRAM/KILOGRAM
     Route: 065
  12. PROPOFOL [Concomitant]
     Active Substance: PROPOFOL
     Dosage: (6?12  MG/KG/H)
     Route: 042
  13. ATRACURIUM [Concomitant]
     Active Substance: ATRACURIUM
     Indication: Anaesthesia
     Dosage: 0.21 MILLIGRAM/KILOGRAM
     Route: 065

REACTIONS (1)
  - Drug ineffective [Unknown]
